FAERS Safety Report 9524038 (Version 1)
Quarter: 2013Q3

REPORT INFORMATION
  Report Type: Spontaneous
  Country: US (occurrence: None)
  Receive Date: 20130912
  Receipt Date: 20130912
  Transmission Date: 20140515
  Serious: Yes (Other)
  Sender: FDA-Public Use
  Company Number: None

PATIENT
  Age: 52 Year
  Sex: Female
  Weight: 49.9 kg

DRUGS (2)
  1. SUTENT 25MG PFIZER [Suspect]
     Indication: RENAL NEOPLASM
     Dosage: 25MG  DAILY  BY MOUTH?
     Route: 048
     Dates: start: 20120314, end: 20120728
  2. SUTENT 25MG PFIZER [Suspect]
     Indication: BRAIN NEOPLASM
     Dosage: 25MG  DAILY  BY MOUTH?
     Route: 048
     Dates: start: 20120314, end: 20120728

REACTIONS (1)
  - Drug ineffective [None]
